FAERS Safety Report 11588298 (Version 2)
Quarter: 2016Q4

REPORT INFORMATION
  Report Type: Spontaneous
  Country: US (occurrence: US)
  Receive Date: 20151002
  Receipt Date: 20161128
  Transmission Date: 20170206
  Serious: No
  Sender: FDA-Public Use
  Company Number: US-ASTRAZENECA-2015SE92170

PATIENT
  Sex: Female
  Weight: 76.2 kg

DRUGS (10)
  1. BYDUREON [Suspect]
     Active Substance: EXENATIDE
     Indication: TYPE 2 DIABETES MELLITUS
     Route: 065
     Dates: start: 20150803, end: 20150921
  2. CRESTOR [Suspect]
     Active Substance: ROSUVASTATIN CALCIUM
     Indication: BLOOD CHOLESTEROL ABNORMAL
     Route: 048
  3. BRILINTA [Suspect]
     Active Substance: TICAGRELOR
     Indication: STENT PLACEMENT
     Route: 048
  4. SYNTHROID [Concomitant]
     Active Substance: LEVOTHYROXINE SODIUM
     Indication: THYROID DISORDER
  5. INSULIN [Concomitant]
     Active Substance: INSULIN NOS
     Dosage: 10 TO 15 UNITS THREE TIMES PER DAY
  6. FLUID PILL [Concomitant]
     Dosage: ONE HALF
  7. POTASSIUM [Concomitant]
     Active Substance: POTASSIUM
     Dosage: ONE HALF
  8. NAPROCIN [Concomitant]
  9. GABAPENTIN. [Concomitant]
     Active Substance: GABAPENTIN
     Indication: NERVE INJURY
  10. DOXYCYCLINE. [Concomitant]
     Active Substance: DOXYCYCLINE
     Indication: CYSTITIS

REACTIONS (4)
  - Glycosylated haemoglobin increased [Unknown]
  - Rash papular [Unknown]
  - Cough [Unknown]
  - Nasopharyngitis [Unknown]
